FAERS Safety Report 24101695 (Version 1)
Quarter: 2024Q3

REPORT INFORMATION
  Report Type: Spontaneous
  Country: US (occurrence: US)
  Receive Date: 20240717
  Receipt Date: 20240717
  Transmission Date: 20241016
  Serious: No
  Sender: NOVO NORDISK
  Company Number: US-NOVOPROD-1218767

PATIENT
  Age: 75 Year

DRUGS (3)
  1. OZEMPIC [Suspect]
     Active Substance: SEMAGLUTIDE
     Indication: Diabetes mellitus
     Dosage: 1 MG
     Route: 058
  2. TRESIBA [Suspect]
     Active Substance: INSULIN DEGLUDEC
     Indication: Diabetes mellitus
     Dosage: UNK, AT NIGHT
     Route: 058
  3. LIMPA [Concomitant]
     Indication: Diabetes mellitus
     Dosage: UNK, DURING DAY TIME

REACTIONS (4)
  - Malaise [Unknown]
  - Incorrect dose administered by device [Unknown]
  - Product storage error [Unknown]
  - Device defective [Unknown]

NARRATIVE: CASE EVENT DATE: 20231013
